FAERS Safety Report 18711963 (Version 2)
Quarter: 2021Q4

REPORT INFORMATION
  Report Type: Report from Study
  Country: JP (occurrence: JP)
  Receive Date: 20210107
  Receipt Date: 20211223
  Transmission Date: 20220303
  Serious: Yes (Other)
  Sender: FDA-Public Use
  Company Number: JP-JT-EVA201301001GILEAD-002

PATIENT
  Age: 39 Year
  Sex: Male

DRUGS (12)
  1. EMTRICITABINE\TENOFOVIR DISOPROXIL FUMARATE [Suspect]
     Active Substance: EMTRICITABINE\TENOFOVIR DISOPROXIL FUMARATE
     Indication: HIV infection
     Dosage: 1 DF, QD
     Route: 048
     Dates: start: 20120107, end: 20170427
  2. CLARITHROMYCIN [Suspect]
     Active Substance: CLARITHROMYCIN
     Indication: Mycobacterium avium complex infection
     Dosage: 400 MG, BID
     Route: 048
     Dates: start: 20120404, end: 20140411
  3. MYCOBUTIN [Suspect]
     Active Substance: RIFABUTIN
     Indication: Mycobacterium avium complex infection
     Dosage: 300 MG, QD
     Route: 048
     Dates: start: 20120404, end: 20140411
  4. ETHAMBUTOL HYDROCHLORIDE [Suspect]
     Active Substance: ETHAMBUTOL HYDROCHLORIDE
     Indication: Mycobacterium avium complex infection
     Dosage: 6 DF, QD
     Route: 048
     Dates: start: 20120404
  5. DARUNAVIR [Concomitant]
     Active Substance: DARUNAVIR
     Indication: HIV infection
     Dosage: UNK MG, UNK
     Dates: start: 20120107, end: 20120404
  6. NORVIR [Concomitant]
     Active Substance: RITONAVIR
     Indication: HIV infection
     Dosage: 100 MG, QD
     Dates: start: 20120107, end: 20120404
  7. ISENTRESS [Concomitant]
     Active Substance: RALTEGRAVIR POTASSIUM
     Indication: HIV infection
     Dosage: 800 MG, QD
     Dates: start: 20120405, end: 20151112
  8. AZITHROMYCIN DIHYDRATE [Concomitant]
     Active Substance: AZITHROMYCIN DIHYDRATE
     Indication: Opportunistic infection prophylaxis
     Dosage: 1200 MG
     Dates: start: 20111215, end: 20120329
  9. STREPTOMYCIN SULFATE [Concomitant]
     Active Substance: STREPTOMYCIN SULFATE
     Indication: Mycobacterium avium complex infection
     Dosage: 0.75 G
     Dates: start: 20120404, end: 20120706
  10. SULFAMETHOXAZOLE\TRIMETHOPRIM [Concomitant]
     Active Substance: SULFAMETHOXAZOLE\TRIMETHOPRIM
     Indication: Antifungal prophylaxis
     Dosage: 4 DOSAGE FORM, TID
     Dates: start: 20111215, end: 20120106
  11. SULFAMETHOXAZOLE\TRIMETHOPRIM [Concomitant]
     Active Substance: SULFAMETHOXAZOLE\TRIMETHOPRIM
     Dosage: 1 DOSAGE FORM, QD
     Route: 048
     Dates: start: 20120107, end: 20120806
  12. FAMOTIDINE [Concomitant]
     Active Substance: FAMOTIDINE
     Indication: Chronic gastritis
     Dosage: 20 MG, QD
     Dates: start: 20120108, end: 20130516

REACTIONS (6)
  - Dyslipidaemia [Recovering/Resolving]
  - White blood cell count decreased [Not Recovered/Not Resolved]
  - Temporomandibular joint syndrome [Recovering/Resolving]
  - Cytomegalovirus viraemia [Recovering/Resolving]
  - Hypo HDL cholesterolaemia [Recovering/Resolving]
  - Gastroenteritis [Recovering/Resolving]

NARRATIVE: CASE EVENT DATE: 20120119
